FAERS Safety Report 19129586 (Version 1)
Quarter: 2021Q2

REPORT INFORMATION
  Report Type: Spontaneous
  Country: US (occurrence: US)
  Receive Date: 20210413
  Receipt Date: 20210413
  Transmission Date: 20210717
  Serious: Yes (Hospitalization)
  Sender: FDA-Public Use
  Company Number: NVSC2021US082143

PATIENT
  Age: 35 Year
  Sex: Female

DRUGS (9)
  1. MYFORTIC [Suspect]
     Active Substance: MYCOPHENOLATE SODIUM
     Indication: RENAL TRANSPLANT
     Dosage: 720 MG, BID
     Route: 065
  2. PREDNISONE. [Suspect]
     Active Substance: PREDNISONE
     Indication: RENAL TRANSPLANT
     Dosage: 30 MG
     Route: 065
  3. ATG RABBIT [Concomitant]
     Active Substance: LAPINE T-LYMPHOCYTE IMMUNE GLOBULIN
     Indication: RENAL TRANSPLANT
     Dosage: 4.5 MG/KG TOTAL DOSE
     Route: 065
  4. MYFORTIC [Suspect]
     Active Substance: MYCOPHENOLATE SODIUM
     Indication: IMMUNOSUPPRESSANT DRUG THERAPY
     Dosage: 320 MG, BID (RESMUED ON DAY 19 TILL DAY 31)
     Route: 065
  5. TACROLIMUS. [Suspect]
     Active Substance: TACROLIMUS
     Indication: IMMUNOSUPPRESSANT DRUG THERAPY
     Dosage: 0.5 MG, BID (12 HOUR TACROLIMUS TROUGH LEVELS OF 6?7 NG/ML)
     Route: 065
  6. TACROLIMUS. [Suspect]
     Active Substance: TACROLIMUS
     Indication: RENAL TRANSPLANT
     Dosage: (12 HOURS TROUGH GOAL 8 ?10 NG/ML)
     Route: 065
  7. MYFORTIC [Suspect]
     Active Substance: MYCOPHENOLATE SODIUM
     Dosage: 540 MG, BID
     Route: 065
  8. WARFARIN [Concomitant]
     Active Substance: WARFARIN
     Indication: MITRAL VALVE REPAIR
     Dosage: UNK
     Route: 065
  9. PREDNISONE. [Suspect]
     Active Substance: PREDNISONE
     Indication: IMMUNOSUPPRESSANT DRUG THERAPY
     Dosage: 5 MG, QD
     Route: 065

REACTIONS (4)
  - COVID-19 pneumonia [Unknown]
  - Transplant rejection [Unknown]
  - Acute kidney injury [Unknown]
  - Vasculitis [Unknown]
